FAERS Safety Report 9227057 (Version 1)
Quarter: 2013Q2

REPORT INFORMATION
  Report Type: Spontaneous
  Country: US (occurrence: US)
  Receive Date: 20130412
  Receipt Date: 20130412
  Transmission Date: 20140414
  Serious: Yes (Other)
  Sender: FDA-Public Use
  Company Number: US-AMGEN-USASP2013024313

PATIENT
  Age: 68 Year
  Sex: Female

DRUGS (1)
  1. ENBREL [Suspect]
     Indication: ANKYLOSING SPONDYLITIS
     Dosage: 50 MG, QWK
     Dates: start: 20120706

REACTIONS (5)
  - Skin ulcer [Recovered/Resolved]
  - Impaired healing [Recovered/Resolved]
  - Acne [Unknown]
  - Headache [Unknown]
  - Sinusitis [Not Recovered/Not Resolved]
